FAERS Safety Report 13355845 (Version 1)
Quarter: 2017Q1

REPORT INFORMATION
  Report Type: Spontaneous
  Country: US (occurrence: US)
  Receive Date: 20170321
  Receipt Date: 20170321
  Transmission Date: 20170429
  Serious: No
  Sender: FDA-Public Use
  Company Number: US-SHIRE-US201706309

PATIENT
  Age: 60 Year
  Sex: Female
  Weight: 47.62 kg

DRUGS (2)
  1. XIIDRA [Suspect]
     Active Substance: LIFITEGRAST
     Indication: DRY EYE
     Dosage: 1 GTT(IN BOTH EYES), 2X/DAY:BID
     Route: 047
     Dates: start: 201610, end: 201611
  2. XIIDRA [Suspect]
     Active Substance: LIFITEGRAST
     Dosage: 1 GTT(BOTH EYES), 2X/DAY:BID
     Route: 047
     Dates: start: 201701, end: 201702

REACTIONS (3)
  - Eczema [Recovered/Resolved]
  - Eye irritation [Recovered/Resolved]
  - Ocular hyperaemia [Recovered/Resolved]

NARRATIVE: CASE EVENT DATE: 201611
